FAERS Safety Report 10628208 (Version 1)
Quarter: 2014Q4

REPORT INFORMATION
  Report Type: Spontaneous
  Country: US (occurrence: US)
  Receive Date: 20141205
  Receipt Date: 20141205
  Transmission Date: 20150529
  Serious: Yes (Hospitalization, Other)
  Sender: FDA-Public Use
  Company Number: US-BRISTOL-MYERS SQUIBB COMPANY-21259627

PATIENT
  Age: 64 Year
  Sex: Female

DRUGS (1)
  1. ERBITUX [Suspect]
     Active Substance: CETUXIMAB
     Indication: COLON CANCER
     Dosage: INFUSION

REACTIONS (8)
  - Madarosis [Unknown]
  - Mass [Unknown]
  - Onychoclasis [Not Recovered/Not Resolved]
  - Pulmonary thrombosis [Unknown]
  - Back pain [Unknown]
  - Impaired healing [Unknown]
  - Diarrhoea [Unknown]
  - Kidney infection [Unknown]
